FAERS Safety Report 12865174 (Version 1)
Quarter: 2016Q4

REPORT INFORMATION
  Report Type: Spontaneous
  Country: US (occurrence: US)
  Receive Date: 20161018
  Receipt Date: 20161018
  Transmission Date: 20170207
  Serious: No
  Sender: FDA-Public Use
  Company Number: None

PATIENT
  Sex: Male
  Weight: 108.96 kg

DRUGS (1)
  1. TEMOZOLOMIDE 400 MG TEVA [Suspect]
     Active Substance: TEMOZOLOMIDE
     Indication: BRAIN NEOPLASM MALIGNANT
     Route: 048
     Dates: start: 20160922

REACTIONS (3)
  - Neurological symptom [None]
  - Hemiplegia [None]
  - Seizure [None]
